FAERS Safety Report 13592102 (Version 1)
Quarter: 2017Q2

REPORT INFORMATION
  Report Type: Spontaneous
  Country: US (occurrence: US)
  Receive Date: 20170530
  Receipt Date: 20170530
  Transmission Date: 20170830
  Serious: No
  Sender: FDA-Public Use
  Company Number: PHEH2017US015818

PATIENT
  Sex: Female

DRUGS (1)
  1. ILEVRO [Suspect]
     Active Substance: NEPAFENAC
     Indication: PRODUCT USED FOR UNKNOWN INDICATION
     Route: 047

REACTIONS (8)
  - Ocular discomfort [Unknown]
  - Dry eye [Unknown]
  - Nausea [Unknown]
  - Lacrimation increased [Unknown]
  - Eye swelling [Unknown]
  - Foreign body sensation in eyes [Unknown]
  - Eyelid margin crusting [Unknown]
  - Eye pruritus [Unknown]
